FAERS Safety Report 7544542-9 (Version None)
Quarter: 2011Q2

REPORT INFORMATION
  Report Type: 
  Country: None (occurrence: None)
  Receive Date: 20110613
  Receipt Date: 20110608
  Transmission Date: 20111010
  Serious: Yes (Hospitalization, Other)
  Sender: FDA-Public Use
  Company Number: US-ELI_LILLY_AND_COMPANY-US200910004072

PATIENT
  Sex: Female
  Weight: 106.58 kg

DRUGS (10)
  1. ULTRAM [Concomitant]
     Dosage: 50 MG, 2/D
  2. BYETTA [Suspect]
     Indication: TYPE 2 DIABETES MELLITUS
     Dosage: 10 UG, 2/D
     Route: 058
     Dates: start: 20070101, end: 20070301
  3. XANAX [Concomitant]
     Dosage: 0.25 MG, 2/D
     Route: 048
  4. PROTONIX [Concomitant]
     Dosage: 40 MG, 2/D
  5. FLEXERIL [Concomitant]
     Dosage: 10 MG, 2/D
  6. GLUCOPHAGE [Concomitant]
     Dosage: 1000 MG, 2/D
  7. ACTOS [Concomitant]
     Dosage: 30 MG, 2/D
  8. GLYBURIDE [Concomitant]
     Dosage: 10 MG, 2/D
  9. WELLBUTRIN [Concomitant]
     Dosage: 150 MG, DAILY (1/D)
  10. LYRICA [Concomitant]
     Dosage: 75 MG, 2/D

REACTIONS (2)
  - RENAL DISORDER [None]
  - PANCREATITIS ACUTE [None]
